FAERS Safety Report 23586394 (Version 4)
Quarter: 2025Q1

REPORT INFORMATION
  Report Type: Spontaneous
  Country: US (occurrence: US)
  Receive Date: 20240301
  Receipt Date: 20250303
  Transmission Date: 20250408
  Serious: No
  Sender: PFIZER
  Company Number: US-PFIZER INC-202400048374

PATIENT
  Age: 7 Year
  Sex: Female
  Weight: 26.5 kg

DRUGS (8)
  1. GENOTROPIN [Suspect]
     Active Substance: SOMATROPIN
     Indication: Growth hormone deficiency
     Route: 058
  2. GENOTROPIN [Suspect]
     Active Substance: SOMATROPIN
     Indication: Hypopituitarism
     Route: 058
  3. GENOTROPIN [Suspect]
     Active Substance: SOMATROPIN
     Route: 058
  4. GENOTROPIN [Suspect]
     Active Substance: SOMATROPIN
     Route: 058
  5. GENOTROPIN [Suspect]
     Active Substance: SOMATROPIN
     Route: 058
  6. GENOTROPIN [Suspect]
     Active Substance: SOMATROPIN
     Route: 058
  7. GENOTROPIN [Suspect]
     Active Substance: SOMATROPIN
     Route: 058
  8. NGENLA [Concomitant]
     Active Substance: SOMATROGON-GHLA

REACTIONS (7)
  - Headache [Unknown]
  - Melanocytic naevus [Unknown]
  - Ephelides [Unknown]
  - Constipation [Unknown]
  - Rectal fissure [Unknown]
  - Product dose omission issue [Unknown]
  - Product administered at inappropriate site [Unknown]

NARRATIVE: CASE EVENT DATE: 20250201
